FAERS Safety Report 9971862 (Version 1)
Quarter: 2014Q1

REPORT INFORMATION
  Report Type: Report from Study
  Country: US (occurrence: US)
  Receive Date: 20140306
  Receipt Date: 20140306
  Transmission Date: 20141002
  Serious: No
  Sender: FDA-Public Use
  Company Number: US-ABBVIE-13P-163-1152845-00

PATIENT
  Age: 57 Year
  Sex: Female

DRUGS (4)
  1. HUMIRA [Suspect]
     Indication: CROHN^S DISEASE
     Route: 058
     Dates: start: 20130829, end: 20130829
  2. HUMIRA [Suspect]
     Route: 058
     Dates: start: 20130912, end: 20130912
  3. HUMIRA [Suspect]
     Route: 058
     Dates: start: 20130926
  4. ESTRODIAL [Concomitant]
     Indication: HORMONE REPLACEMENT THERAPY
     Dosage: PATCHES / DOSE/FREQUENCY NOT OBTAINED.

REACTIONS (1)
  - Nausea [Recovered/Resolved]
